FAERS Safety Report 20928318 (Version 1)
Quarter: 2022Q2

REPORT INFORMATION
  Report Type: Spontaneous
  Country: US (occurrence: US)
  Receive Date: 20220607
  Receipt Date: 20220607
  Transmission Date: 20220720
  Serious: No
  Sender: FDA-Public Use
  Company Number: US-PERRIGO-22US001387

PATIENT
  Sex: Male

DRUGS (1)
  1. MINOXIDIL [Suspect]
     Active Substance: MINOXIDIL
     Indication: Product used for unknown indication
     Dosage: UNKNOWN, UNKNOWN
     Route: 061
     Dates: start: 202110

REACTIONS (6)
  - Application site exfoliation [Recovering/Resolving]
  - Application site pain [Unknown]
  - Application site dryness [Unknown]
  - Application site wound [Unknown]
  - Application site scab [Unknown]
  - Application site pruritus [Unknown]

NARRATIVE: CASE EVENT DATE: 20220101
